FAERS Safety Report 8770603 (Version 1)
Quarter: 2012Q4

REPORT INFORMATION
  Report Type: 
  Country: FR (occurrence: FR)
  Receive Date: 20120906
  Receipt Date: 20120906
  Transmission Date: 20130627
  Serious: Yes (Hospitalization, Other)
  Sender: FDA-Public Use
  Company Number: PHHY2012FR077166

PATIENT
  Age: 18 Year
  Sex: Male

DRUGS (3)
  1. MYFORTIC [Suspect]
     Dosage: 360 mg, UNK
     Route: 048
  2. SOLUPRED [Suspect]
     Dosage: 5 mg, UNK
     Route: 048
  3. TACROLIMUS [Suspect]
     Route: 048
     Dates: start: 201108

REACTIONS (4)
  - Papilloedema [Unknown]
  - Eye oedema [Unknown]
  - Angiopathy [Unknown]
  - Cerebral microhaemorrhage [Unknown]
